FAERS Safety Report 5023334-9 (Version None)
Quarter: 2006Q2

REPORT INFORMATION
  Report Type: 
  Country: None (occurrence: None)
  Receive Date: 20060501
  Receipt Date: 20060316
  Transmission Date: 20061013
  Serious: Yes (Hospitalization)
  Sender: FDA-Public Use
  Company Number: US200603005290

PATIENT
  Age: 40 Year
  Sex: Male

DRUGS (1)
  1. SYMBYAX [Suspect]
     Indication: PERSONALITY DISORDER
     Dosage: D/F

REACTIONS (1)
  - PANCREATITIS [None]
